FAERS Safety Report 7874041-6 (Version None)
Quarter: 2011Q4

REPORT INFORMATION
  Report Type: 
  Country: None (occurrence: None)
  Receive Date: 20111030
  Receipt Date: 20110513
  Transmission Date: 20120403
  Serious: No
  Sender: FDA-Public Use
  Company Number: US-AMGEN-USASP2011024894

PATIENT
  Age: 58 Year
  Sex: Female

DRUGS (1)
  1. ENBREL [Suspect]
     Indication: PSORIASIS
     Dosage: 50 MG, 2 TIMES/WK
     Dates: start: 20110310

REACTIONS (6)
  - RHINORRHOEA [None]
  - ANOSMIA [None]
  - MYALGIA [None]
  - COUGH [None]
  - ARTHRALGIA [None]
  - AGEUSIA [None]
